FAERS Safety Report 4536765-8 (Version None)
Quarter: 2004Q4

REPORT INFORMATION
  Report Type: 
  Country: None (occurrence: None)
  Receive Date: 20041223
  Receipt Date: 20041207
  Transmission Date: 20050328
  Serious: Yes (Hospitalization)
  Sender: FDA-Public Use
  Company Number: GB-ROCHE-388786

PATIENT
  Age: 47 Year
  Sex: Male

DRUGS (6)
  1. CAPECITABINE [Suspect]
     Indication: GASTROOESOPHAGEAL CANCER
     Dosage: PROTOCOL MANDATED DOSE: 1250MG/M2 DAILY IN 2 DIVIDED DOSES FOR 24 WEEKS.
     Route: 065
     Dates: start: 20040730, end: 20041121
  2. EPIRUBICIN [Suspect]
     Indication: GASTROOESOPHAGEAL CANCER
     Dosage: 50MG/M2 IV BOLUS ONCE EVERY 3 WEEKS (MAX 8 CYCLES).
     Route: 040
     Dates: start: 20040730, end: 20041121
  3. CISPLATIN [Suspect]
     Indication: GASTROOESOPHAGEAL CANCER
     Dosage: 60MG/M2 WITH HYDRATION ONCE EVERY 3 WEEKS (MAX 8 CYCLES).
     Route: 065
     Dates: start: 20040730, end: 20041121
  4. LANSOPRAZOLE [Concomitant]
  5. ADALAT CC [Concomitant]
  6. FLUCONAZOLE [Concomitant]

REACTIONS (5)
  - AMNESIA [None]
  - CEREBRAL INFARCTION [None]
  - CEREBROVASCULAR ACCIDENT [None]
  - DYSPRAXIA [None]
  - HEMIPARESIS [None]
